FAERS Safety Report 7209427-6 (Version None)
Quarter: 2011Q1

REPORT INFORMATION
  Report Type: 
  Country: None (occurrence: None)
  Receive Date: 20110104
  Receipt Date: 20101222
  Transmission Date: 20110831
  Serious: Yes (Other)
  Sender: FDA-Public Use
  Company Number: PL-BAYER-2010-006667

PATIENT
  Sex: Female
  Weight: 59 kg

DRUGS (1)
  1. YAZ [Suspect]
     Indication: CONTRACEPTION
     Dosage: UNK UNK, QD
     Dates: start: 20100702, end: 20100709

REACTIONS (5)
  - VOMITING [None]
  - DIARRHOEA [None]
  - SYNCOPE [None]
  - HEADACHE [None]
  - VERTIGO [None]
